FAERS Safety Report 18491193 (Version 1)
Quarter: 2020Q4

REPORT INFORMATION
  Report Type: Spontaneous
  Country: US (occurrence: US)
  Receive Date: 20201111
  Receipt Date: 20201111
  Transmission Date: 20210114
  Serious: No
  Sender: FDA-Public Use
  Company Number: None

PATIENT
  Age: 8 Year
  Sex: Male

DRUGS (10)
  1. PROAIR, [Concomitant]
  2. PULMOZYME [Suspect]
     Active Substance: DORNASE ALFA
     Indication: CYSTIC FIBROSIS
     Dosage: ?          OTHER ROUTE:INHALE?
     Dates: start: 20170824
  3. MVW COMPLETE, [Concomitant]
  4. PREVACID, [Concomitant]
  5. CULTURELLE, [Concomitant]
  6. SALT STABLE [Concomitant]
  7. HYPER-SAL, [Concomitant]
  8. CREON, [Concomitant]
  9. QVAR, [Concomitant]
  10. RANITIDINE, [Concomitant]

REACTIONS (1)
  - Constipation [None]

NARRATIVE: CASE EVENT DATE: 20201108
